FAERS Safety Report 15337573 (Version 3)
Quarter: 2018Q4

REPORT INFORMATION
  Report Type: Spontaneous
  Country: US (occurrence: US)
  Receive Date: 20180831
  Receipt Date: 20181114
  Transmission Date: 20190204
  Serious: No
  Sender: FDA-Public Use
  Company Number: US-PFIZER INC-2018350868

PATIENT
  Age: 82 Year
  Sex: Male
  Weight: 66.21 kg

DRUGS (2)
  1. SUTENT [Suspect]
     Active Substance: SUNITINIB MALATE
     Indication: RENAL CANCER
     Dosage: 37.5 MG, CYCLIC (DAY 1 - 28 EVERY 42 DAYS)
     Route: 048
     Dates: start: 20180822
  2. SUTENT [Suspect]
     Active Substance: SUNITINIB MALATE
     Indication: RENAL CELL CARCINOMA

REACTIONS (8)
  - Constipation [Unknown]
  - Dizziness [Unknown]
  - Dry mouth [Unknown]
  - Decreased appetite [Unknown]
  - Epistaxis [Unknown]
  - Dysgeusia [Not Recovered/Not Resolved]
  - Weight decreased [Unknown]
  - Hypertension [Unknown]
